FAERS Safety Report 6733010-X (Version None)
Quarter: 2010Q2

REPORT INFORMATION
  Report Type: 
  Country: None (occurrence: None)
  Receive Date: 20100514
  Receipt Date: 20100503
  Transmission Date: 20101027
  Serious: Yes (Death)
  Sender: FDA-Public Use
  Company Number: 1000013767

PATIENT
  Age: 71 Year
  Sex: Female

DRUGS (7)
  1. PROPRANOLOL [Suspect]
     Indication: ATRIAL FIBRILLATION
  2. METHYLPREDNISOLONE [Suspect]
     Indication: ENDOCRINE OPHTHALMOPATHY
     Dosage: 1 GM (1 GM,1 IN 1 D), INTRAVENOUS
     Route: 042
     Dates: start: 20030601
  3. METHYLPREDNISOLONE [Suspect]
     Indication: ENDOCRINE OPHTHALMOPATHY
     Dosage: 1 GM (1 GM,1 IN 1 D), INTRAVENOUS
     Route: 042
     Dates: start: 20031201
  4. DIGOXIN [Concomitant]
  5. CLOPIDOGREL [Concomitant]
  6. PROPYLTHIOURACIL [Concomitant]
  7. CYCLOSPORINE [Concomitant]

REACTIONS (8)
  - ATRIAL FIBRILLATION [None]
  - CARDIAC ARREST [None]
  - COLOUR BLINDNESS ACQUIRED [None]
  - CORONARY ARTERY THROMBOSIS [None]
  - NO THERAPEUTIC RESPONSE [None]
  - PULMONARY EMBOLISM [None]
  - RESPIRATORY ARREST [None]
  - VISUAL ACUITY REDUCED [None]
